FAERS Safety Report 8105180-2 (Version None)
Quarter: 2012Q1

REPORT INFORMATION
  Report Type: 
  Country: None (occurrence: None)
  Receive Date: 20120201
  Receipt Date: 20120125
  Transmission Date: 20120608
  Serious: Yes (Hospitalization, Other)
  Sender: FDA-Public Use
  Company Number: US-AMGEN-USASP2012005092

PATIENT
  Age: 68 Year
  Sex: Female

DRUGS (4)
  1. SENSIPAR [Suspect]
     Indication: BLOOD PARATHYROID HORMONE INCREASED
     Dosage: 30 MG, QD
  2. KEPPRA [Concomitant]
     Dosage: 250 MG, QD
  3. KEPPRA [Concomitant]
     Indication: CONVULSION
     Dosage: 500 MG, QD
  4. DILANTIN [Concomitant]
     Indication: CONVULSION
     Dosage: 100 MG, BID

REACTIONS (6)
  - BLOOD PRESSURE DECREASED [None]
  - DECREASED APPETITE [None]
  - CONVULSION [None]
  - DRUG INTERACTION [None]
  - DRUG LEVEL BELOW THERAPEUTIC [None]
  - WEIGHT DECREASED [None]
